FAERS Safety Report 6581798-3 (Version None)
Quarter: 2010Q1

REPORT INFORMATION
  Report Type: 
  Country: None (occurrence: None)
  Receive Date: 20100215
  Receipt Date: 20100210
  Transmission Date: 20100710
  Serious: Yes (Death, Hospitalization)
  Sender: FDA-Public Use
  Company Number: PHHY2010FR07773

PATIENT
  Age: 66 Year
  Sex: Male
  Weight: 82 kg

DRUGS (1)
  1. ICL670A ICL+ [Suspect]
     Indication: HAEMOSIDEROSIS
     Dosage: UNK
     Dates: start: 20071101, end: 20090301

REACTIONS (1)
  - INFECTION [None]
